FAERS Safety Report 6457041-2 (Version None)
Quarter: 2009Q4

REPORT INFORMATION
  Report Type: 
  Country: None (occurrence: None)
  Receive Date: 20091125
  Receipt Date: 20091118
  Transmission Date: 20100525
  Serious: Yes (Hospitalization)
  Sender: FDA-Public Use
  Company Number: A0802605A

PATIENT
  Age: 67 Year
  Sex: Male
  Weight: 115 kg

DRUGS (8)
  1. AVANDIA [Suspect]
     Dosage: 8MG PER DAY
     Route: 048
     Dates: start: 19990701, end: 20071216
  2. AVANDAMET [Suspect]
     Route: 048
     Dates: start: 20030821
  3. GLUCOPHAGE [Concomitant]
  4. DIABETA [Concomitant]
  5. LIPITOR [Concomitant]
  6. MOTRIN [Concomitant]
  7. NORVASC [Concomitant]
  8. HYZAAR [Concomitant]

REACTIONS (3)
  - ACUTE MYOCARDIAL INFARCTION [None]
  - ARTERIOSCLEROSIS CORONARY ARTERY [None]
  - CARDIOVASCULAR DISORDER [None]
